FAERS Safety Report 18397633 (Version 1)
Quarter: 2020Q4

REPORT INFORMATION
  Report Type: Spontaneous
  Country: US (occurrence: US)
  Receive Date: 20201016
  Receipt Date: 20201016
  Transmission Date: 20210114
  Serious: Yes (Hospitalization)
  Sender: FDA-Public Use
  Company Number: None

PATIENT
  Sex: Female

DRUGS (2)
  1. LUPRON DEPOT [Suspect]
     Active Substance: LEUPROLIDE ACETATE
     Indication: MENORRHAGIA
     Dosage: ?          OTHER FREQUENCY:Q30D;OTHER ROUTE:IM?
  2. RABEPRAZOLE [Suspect]
     Active Substance: RABEPRAZOLE

REACTIONS (1)
  - Transfusion [None]
